FAERS Safety Report 13753331 (Version 5)
Quarter: 2018Q1

REPORT INFORMATION
  Report Type: Report from Study
  Country: AT (occurrence: AT)
  Receive Date: 20170713
  Receipt Date: 20180213
  Transmission Date: 20180508
  Serious: Yes (Other)
  Sender: FDA-Public Use
  Company Number: AT-TAKEDA-2017TUS014761

PATIENT
  Age: 46 Year
  Sex: Male
  Weight: 82 kg

DRUGS (20)
  1. OLEOVIT D3 [Concomitant]
     Active Substance: CHOLECALCIFEROL
     Indication: PRODUCT USED FOR UNKNOWN INDICATION
     Dosage: 40 GTT, 1/WEEK
     Route: 048
  2. CUROCEF                            /00454602/ [Concomitant]
     Indication: PRODUCT USED FOR UNKNOWN INDICATION
     Dosage: UNK, QD
     Route: 065
     Dates: start: 20170515, end: 20170515
  3. ZOLDEM [Concomitant]
     Active Substance: ZOLPIDEM TARTRATE
     Dosage: 10 MG, QD
     Route: 048
     Dates: start: 20170518, end: 20170605
  4. TRITTICO [Concomitant]
     Active Substance: TRAZODONE HYDROCHLORIDE
     Dosage: 250 MG, QD
     Route: 048
     Dates: start: 20170607, end: 20170613
  5. VORTIOXETINE. [Suspect]
     Active Substance: VORTIOXETINE
     Dosage: 15 MG, QD
     Route: 048
     Dates: start: 20170522, end: 20170530
  6. CIPRALEX [Suspect]
     Active Substance: ESCITALOPRAM OXALATE
     Indication: PRODUCT USED FOR UNKNOWN INDICATION
     Dosage: UNK
     Route: 048
  7. ZOLDEM [Concomitant]
     Active Substance: ZOLPIDEM TARTRATE
     Indication: PRODUCT USED FOR UNKNOWN INDICATION
     Dosage: 5 MG, QD
     Route: 048
     Dates: end: 20170517
  8. ZOLDEM [Concomitant]
     Active Substance: ZOLPIDEM TARTRATE
     Dosage: 5 MG, QD
     Route: 048
     Dates: start: 20170606, end: 20170619
  9. VORTIOXETINE. [Suspect]
     Active Substance: VORTIOXETINE
     Dosage: 15 MG, QD
     Route: 048
     Dates: start: 20170508, end: 20170516
  10. CAL D VITA [Concomitant]
     Indication: PRODUCT USED FOR UNKNOWN INDICATION
     Dosage: UNK, QD
     Route: 048
  11. APREDNISLON [Concomitant]
     Active Substance: PREDNISOLONE
     Indication: PRODUCT USED FOR UNKNOWN INDICATION
     Dosage: 5 MG, QD
     Route: 048
  12. VORTIOXETINE. [Suspect]
     Active Substance: VORTIOXETINE
     Indication: MAJOR DEPRESSION
     Dosage: 5 MG, QD
     Route: 048
     Dates: start: 20170427, end: 20170501
  13. VORTIOXETINE. [Suspect]
     Active Substance: VORTIOXETINE
     Dosage: 20 MG, QD
     Route: 048
     Dates: start: 20170517, end: 20170521
  14. VENLAFAXINE HYDROCHLORIDE. [Suspect]
     Active Substance: VENLAFAXINE HYDROCHLORIDE
     Indication: PRODUCT USED FOR UNKNOWN INDICATION
     Dosage: UNK
     Route: 065
  15. DULOXETINE HYDROCHLORIDE. [Suspect]
     Active Substance: DULOXETINE HYDROCHLORIDE
     Indication: PRODUCT USED FOR UNKNOWN INDICATION
     Dosage: 60 MG, UNK
     Route: 065
  16. TRITTICO [Concomitant]
     Active Substance: TRAZODONE HYDROCHLORIDE
     Dosage: 300 MG, QD
     Route: 048
     Dates: start: 20170613
  17. VORTIOXETINE. [Suspect]
     Active Substance: VORTIOXETINE
     Dosage: 10 MG, QD
     Route: 048
     Dates: start: 20170502, end: 20170507
  18. CUROCEF                            /00454602/ [Concomitant]
     Dosage: 9 G, QD
     Route: 065
     Dates: start: 20170516, end: 20170521
  19. TRITTICO [Concomitant]
     Active Substance: TRAZODONE HYDROCHLORIDE
     Indication: PRODUCT USED FOR UNKNOWN INDICATION
     Dosage: 150 MG, QD
     Route: 048
     Dates: end: 20170605
  20. TRITTICO [Concomitant]
     Active Substance: TRAZODONE HYDROCHLORIDE
     Dosage: 200 MG, QD
     Route: 048
     Dates: start: 20170606, end: 20170606

REACTIONS (3)
  - Pneumonia [Unknown]
  - Erectile dysfunction [Unknown]
  - Headache [Recovered/Resolved]

NARRATIVE: CASE EVENT DATE: 20170509
